FAERS Safety Report 9008904 (Version 1)
Quarter: 2013Q1

REPORT INFORMATION
  Report Type: Spontaneous
  Country: FR (occurrence: FR)
  Receive Date: 20130111
  Receipt Date: 20130111
  Transmission Date: 20140127
  Serious: Yes (Death, Hospitalization)
  Sender: FDA-Public Use
  Company Number: FR-009507513-1301FRA000658

PATIENT
  Age: 68 Year
  Sex: Male

DRUGS (11)
  1. TEMODAL [Suspect]
     Indication: MALIGNANT GLIOMA
     Dosage: 140 MG, QD
     Route: 048
     Dates: start: 20120917, end: 20121025
  2. INEXIUM [Suspect]
     Indication: PRODUCT USED FOR UNKNOWN INDICATION
     Dosage: 40 MG, QD
     Route: 048
     Dates: start: 20120904, end: 20121031
  3. LEVETIRACETAM [Suspect]
     Indication: PRODUCT USED FOR UNKNOWN INDICATION
     Dosage: 500 MG, QD
     Route: 048
     Dates: start: 20120917, end: 20121031
  4. MEDROL [Suspect]
     Indication: PRODUCT USED FOR UNKNOWN INDICATION
     Dosage: 100 MG, QD
     Route: 048
     Dates: start: 20121004, end: 20121031
  5. RADIATION THERAPY [Concomitant]
     Indication: MALIGNANT GLIOMA
     Dosage: UNK
     Dates: start: 20120917
  6. DOLIPRANE [Concomitant]
     Indication: PRODUCT USED FOR UNKNOWN INDICATION
     Dosage: 500 MG, PRN
     Dates: start: 20120904
  7. METHYLPREDNISOLONE [Concomitant]
     Indication: PRODUCT USED FOR UNKNOWN INDICATION
     Dosage: 120 MG, UNK
  8. MANNITOL [Concomitant]
     Indication: PRODUCT USED FOR UNKNOWN INDICATION
     Dosage: UNK
     Route: 042
     Dates: start: 20121001, end: 20121003
  9. SODIUM CHLORIDE [Concomitant]
     Indication: PRODUCT USED FOR UNKNOWN INDICATION
     Dosage: UNK
     Route: 042
     Dates: start: 20121001, end: 20121003
  10. FONX [Concomitant]
     Indication: PRODUCT USED FOR UNKNOWN INDICATION
  11. SMECTA [Concomitant]
     Indication: PRODUCT USED FOR UNKNOWN INDICATION

REACTIONS (1)
  - Mixed liver injury [Fatal]
